FAERS Safety Report 20393217 (Version 3)
Quarter: 2022Q1

REPORT INFORMATION
  Report Type: Report from Study
  Country: PE (occurrence: PE)
  Receive Date: 20220128
  Receipt Date: 20220323
  Transmission Date: 20220424
  Serious: Yes (Death, Hospitalization, Other)
  Sender: FDA-Public Use
  Company Number: PE-TAKEDA-2021TUS060131

PATIENT
  Sex: Male
  Weight: 60 kg

DRUGS (1)
  1. IXAZOMIB [Suspect]
     Active Substance: IXAZOMIB
     Indication: Plasma cell myeloma
     Dosage: 4 MILLIGRAM, 1/WEEK
     Route: 048
     Dates: start: 20210922

REACTIONS (4)
  - COVID-19 [Fatal]
  - Unevaluable event [Unknown]
  - Constipation [Unknown]
  - Intentional dose omission [Unknown]
